APPROVED DRUG PRODUCT: SOLUPREP S
Active Ingredient: CHLORHEXIDINE GLUCONATE; ISOPROPYL ALCOHOL
Strength: 2%;70%
Dosage Form/Route: SOLUTION;TOPICAL
Application: N208288 | Product #001
Applicant: 3M HEALTH CARE INFECTION PREVENTION DIV
Approved: Aug 8, 2018 | RLD: Yes | RS: Yes | Type: OTC

EXCLUSIVITY:
Code: M-292 | Date: Jan 20, 2026